FAERS Safety Report 7769526-7 (Version None)
Quarter: 2011Q3

REPORT INFORMATION
  Report Type: 
  Country: None (occurrence: None)
  Receive Date: 20110922
  Receipt Date: 20110107
  Transmission Date: 20111222
  Serious: No
  Sender: FDA-Public Use
  Company Number: US-ASTRAZENECA-2011SE01352

PATIENT
  Sex: Male

DRUGS (1)
  1. SEROQUEL [Suspect]
     Indication: BIPOLAR DISORDER
     Route: 048

REACTIONS (7)
  - ATRIAL FIBRILLATION [None]
  - WEIGHT INCREASED [None]
  - DIVERTICULITIS [None]
  - NAIL DISCOLOURATION [None]
  - STEATORRHOEA [None]
  - MELAENA [None]
  - GLUCOSE TOLERANCE IMPAIRED [None]
